FAERS Safety Report 9360638 (Version 1)
Quarter: 2013Q2

REPORT INFORMATION
  Report Type: Spontaneous
  Country: US (occurrence: None)
  Receive Date: 20130620
  Receipt Date: 20130620
  Transmission Date: 20140414
  Serious: Yes (Other)
  Sender: FDA-Public Use
  Company Number: None

PATIENT
  Age: 28 Year
  Sex: Female
  Weight: 122.47 kg

DRUGS (1)
  1. VIIBRYD [Suspect]
     Indication: DEPRESSION
     Dosage: 10MG, 20MG, 40MG?1 DAILY
     Route: 048
     Dates: start: 20130503, end: 20130619

REACTIONS (8)
  - Nightmare [None]
  - Paralysis [None]
  - Screaming [None]
  - Hallucination [None]
  - Paranoia [None]
  - Sleep paralysis [None]
  - Abdominal discomfort [None]
  - Diarrhoea [None]
